FAERS Safety Report 4463423-0 (Version None)
Quarter: 2004Q3

REPORT INFORMATION
  Report Type: 
  Country: None (occurrence: None)
  Receive Date: 20040928
  Receipt Date: 20040914
  Transmission Date: 20050211
  Serious: No
  Sender: FDA-Public Use
  Company Number: 2004-BP-08110BP

PATIENT
  Age: 30 Year
  Sex: Female

DRUGS (4)
  1. VIRAMUNE [Suspect]
     Indication: HIV INFECTION
     Dosage: 400 MG, PO
     Route: 048
  2. EMTRIVA [Concomitant]
  3. VIDEX EC [Concomitant]
  4. VIREAD (TENOFOVIR DISOPROXIL FUMARATE) [Concomitant]

REACTIONS (2)
  - ABORTION SPONTANEOUS [None]
  - DRUG EXPOSURE DURING PREGNANCY [None]
